FAERS Safety Report 17952695 (Version 12)
Quarter: 2023Q4

REPORT INFORMATION
  Report Type: Report from Study
  Country: CA (occurrence: CA)
  Receive Date: 20200626
  Receipt Date: 20231106
  Transmission Date: 20240109
  Serious: Yes (Death, Hospitalization, Other)
  Sender: FDA-Public Use
  Company Number: PHHY2017CA036377

PATIENT
  Age: 75 Year
  Sex: Female

DRUGS (6)
  1. COSENTYX [Suspect]
     Active Substance: SECUKINUMAB
     Indication: Psoriasis
     Dosage: 300 MG, Q2W
     Route: 058
     Dates: start: 20170225
  2. COSENTYX [Suspect]
     Active Substance: SECUKINUMAB
     Dosage: 300 MG, QMO
     Route: 058
     Dates: start: 20170325
  3. COSENTYX [Suspect]
     Active Substance: SECUKINUMAB
     Dosage: 300 MG, QMO
     Route: 058
     Dates: start: 20170525
  4. COSENTYX [Suspect]
     Active Substance: SECUKINUMAB
     Dosage: 300 MG, Q2W
     Route: 058
  5. COSENTYX [Suspect]
     Active Substance: SECUKINUMAB
     Dosage: 300 MG, Q2W
     Route: 065
  6. COSENTYX [Suspect]
     Active Substance: SECUKINUMAB
     Dosage: 300 MG, Q2W
     Route: 058
     Dates: start: 20230818

REACTIONS (29)
  - Death [Fatal]
  - Pancreatitis [Unknown]
  - Neoplasm malignant [Unknown]
  - Gastrointestinal disorder [Unknown]
  - Abdominal pain upper [Unknown]
  - Feeding disorder [Recovering/Resolving]
  - Malignant gastrointestinal obstruction [Unknown]
  - Kidney infection [Unknown]
  - Pathogen resistance [Unknown]
  - Urinary tract infection [Unknown]
  - Malaise [Unknown]
  - Throat irritation [Unknown]
  - Cough [Unknown]
  - Bone pain [Unknown]
  - Nausea [Recovered/Resolved]
  - Hypoaesthesia [Unknown]
  - Dyspnoea [Unknown]
  - Tremor [Unknown]
  - Peripheral coldness [Unknown]
  - Burning sensation [Unknown]
  - Dysuria [Unknown]
  - Genital discomfort [Unknown]
  - Ocular hyperaemia [Unknown]
  - Muscle spasms [Unknown]
  - Pain [Unknown]
  - Skin discolouration [Unknown]
  - COVID-19 [Unknown]
  - Discomfort [Unknown]
  - Drug ineffective [Unknown]

NARRATIVE: CASE EVENT DATE: 20220818
